FAERS Safety Report 12129679 (Version 1)
Quarter: 2016Q1

REPORT INFORMATION
  Report Type: Other
  Country: US (occurrence: US)
  Receive Date: 20160229
  Receipt Date: 20160229
  Transmission Date: 20160526
  Serious: No
  Sender: FDA-Public Use
  Company Number: US-ACORDA-ACO_120762_2016

PATIENT
  Sex: Female

DRUGS (2)
  1. AMPYRA [Suspect]
     Active Substance: DALFAMPRIDINE
     Indication: MULTIPLE SCLEROSIS
     Route: 065
  2. COPAXONE [Suspect]
     Active Substance: GLATIRAMER ACETATE
     Indication: PRODUCT USED FOR UNKNOWN INDICATION
     Route: 065

REACTIONS (15)
  - Dysarthria [Recovered/Resolved]
  - Throat tightness [Unknown]
  - Flushing [Unknown]
  - Contusion [Unknown]
  - Nausea [Unknown]
  - Abasia [Unknown]
  - Pain [Unknown]
  - Adverse event [Recovered/Resolved]
  - Feeling drunk [Recovered/Resolved]
  - Rash [Unknown]
  - Feeling hot [Unknown]
  - Feeling abnormal [Recovered/Resolved]
  - Movement disorder [Unknown]
  - Dysstasia [Unknown]
  - Injection site pain [Unknown]
